FAERS Safety Report 8041990-8 (Version None)
Quarter: 2012Q1

REPORT INFORMATION
  Report Type: 
  Country: None (occurrence: None)
  Receive Date: 20120112
  Receipt Date: 20120109
  Transmission Date: 20120608
  Serious: Yes (Other)
  Sender: FDA-Public Use
  Company Number: PHHY2011AU111067

PATIENT
  Sex: Female

DRUGS (5)
  1. CALCIUM CARBONATE [Concomitant]
     Indication: OSTEOPOROSIS
     Dosage: 1 DF, DAILY
  2. EXJADE [Suspect]
     Indication: IRON OVERLOAD
     Dosage: 1500 MG, DAILY
  3. VITAMIN D [Concomitant]
     Indication: VITAMIN D DEFICIENCY
     Dosage: 1000 U, DAILY
  4. NORDETTE-28 [Concomitant]
     Indication: HYPOGONADISM
     Dosage: 1 DF, DAILY
  5. NORDETTE-28 [Concomitant]
     Indication: ORAL CONTRACEPTION

REACTIONS (3)
  - NEPHROLITHIASIS [None]
  - FLANK PAIN [None]
  - HAEMATURIA [None]
